FAERS Safety Report 5022237-3 (Version None)
Quarter: 2006Q2

REPORT INFORMATION
  Report Type: 
  Country: None (occurrence: None)
  Receive Date: 20060609
  Receipt Date: 20060222
  Transmission Date: 20061013
  Serious: Yes (Hospitalization)
  Sender: FDA-Public Use
  Company Number: 2006AP00950

PATIENT
  Age: 61 Year
  Sex: Female
  Weight: 49.4 kg

DRUGS (5)
  1. CRESTOR [Suspect]
     Indication: HYPERCHOLESTEROLAEMIA
     Route: 048
     Dates: start: 20060206, end: 20060217
  2. CRESTOR [Suspect]
     Route: 048
     Dates: start: 20060307, end: 20060407
  3. GASTER D [Concomitant]
     Indication: GASTRITIS
     Route: 048
     Dates: start: 20041129
  4. MAGNESIUM OXIDE [Concomitant]
     Indication: CONSTIPATION
     Route: 048
     Dates: start: 20041129
  5. GASMOTIN [Concomitant]
     Indication: GASTRITIS
     Route: 048
     Dates: start: 20050822

REACTIONS (2)
  - CHOLELITHIASIS [None]
  - PANCREATITIS [None]
